FAERS Safety Report 17354386 (Version 3)
Quarter: 2024Q1

REPORT INFORMATION
  Report Type: Spontaneous
  Country: GB (occurrence: GB)
  Receive Date: 20200131
  Receipt Date: 20240208
  Transmission Date: 20240409
  Serious: Yes (Death, Hospitalization, Other)
  Sender: FDA-Public Use
  Company Number: GB-EMA-DD-20200113-KUMARVN_P-161616

PATIENT
  Age: 75 Year
  Sex: Female
  Weight: 62.6 kg

DRUGS (29)
  1. COCODAMOL [Suspect]
     Active Substance: ACETAMINOPHEN\CODEINE PHOSPHATE
     Indication: Rheumatoid arthritis
     Dosage: DOSAGE TEXT: UNK
     Route: 065
     Dates: start: 200203
  2. COCODAMOL [Suspect]
     Active Substance: ACETAMINOPHEN\CODEINE PHOSPHATE
     Indication: Rheumatoid arthritis
     Dosage: UNK
     Route: 005
     Dates: start: 200203
  3. PROPOFOL [Suspect]
     Active Substance: PROPOFOL
     Indication: Induction of anaesthesia
     Dosage: DOSAGE TEXT: UNK
     Route: 042
     Dates: start: 200203, end: 200203
  4. PROPOFOL [Suspect]
     Active Substance: PROPOFOL
     Indication: Induction of anaesthesia
     Dosage: UNK
     Route: 042
     Dates: start: 20020301, end: 20020301
  5. NITROGLYCERIN [Suspect]
     Active Substance: NITROGLYCERIN
     Indication: Angina pectoris
     Dosage: DOSAGE TEXT: UNK
     Route: 048
     Dates: start: 200203, end: 200203
  6. NITROGLYCERIN [Suspect]
     Active Substance: NITROGLYCERIN
     Indication: Angina pectoris
     Dosage: UNK
     Route: 048
     Dates: start: 20020301, end: 200203
  7. ARAVA [Suspect]
     Active Substance: LEFLUNOMIDE
     Indication: Rheumatoid arthritis
     Dosage: DOSAGE TEXT: 20 MG, QD
     Route: 065
     Dates: start: 200203, end: 200203
  8. ASPIRIN [Suspect]
     Active Substance: ASPIRIN
     Indication: Pain
     Dosage: UNK
     Route: 065
     Dates: start: 20020301
  9. PANCURONIUM BROMIDE [Suspect]
     Active Substance: PANCURONIUM BROMIDE
     Indication: Muscle relaxant therapy
     Dosage: UNK
     Route: 065
     Dates: start: 20020301, end: 20020301
  10. LISINOPRIL [Suspect]
     Active Substance: LISINOPRIL
     Indication: Hypertension
     Dosage: DOSAGE TEXT: UNK
     Route: 048
     Dates: start: 200203
  11. MIDAZOLAM [Suspect]
     Active Substance: MIDAZOLAM
     Indication: Induction of anaesthesia
     Dosage: DOSAGE TEXT: UNK
     Route: 042
     Dates: start: 200203, end: 200203
  12. LANSOPRAZOLE [Suspect]
     Active Substance: LANSOPRAZOLE
     Indication: Duodenal ulcer
     Dosage: DOSAGE TEXT: UNK
     Route: 048
     Dates: start: 20020301
  13. QUININE SULFATE [Suspect]
     Active Substance: QUININE SULFATE
     Indication: Muscle spasms
     Dosage: UNK
     Route: 065
  14. DILTIAZEM HYDROCHLORIDE [Suspect]
     Active Substance: DILTIAZEM HYDROCHLORIDE
     Indication: Hypertension
     Dosage: DOSAGE TEXT: UNK
     Route: 065
     Dates: start: 200203
  15. DILTIAZEM HYDROCHLORIDE [Suspect]
     Active Substance: DILTIAZEM HYDROCHLORIDE
     Indication: Hypertension
     Dosage: UNK
     Route: 065
  16. LISINOPRIL [Suspect]
     Active Substance: LISINOPRIL
     Indication: Hypertension
     Dosage: UNK
     Route: 048
     Dates: start: 20020301, end: 200203
  17. BUDESONIDE [Suspect]
     Active Substance: BUDESONIDE
     Indication: Asthma
     Dosage: DOSAGE TEXT: UNK
     Route: 055
     Dates: start: 201903
  18. BUDESONIDE [Suspect]
     Active Substance: BUDESONIDE
     Indication: Asthma
     Dosage: UNK
     Route: 055
     Dates: start: 200203
  19. DILTIAZEM HYDROCHLORIDE [Suspect]
     Active Substance: DILTIAZEM HYDROCHLORIDE
     Indication: Hypertension
     Dosage: UNK
     Route: 065
     Dates: start: 20020301
  20. ATORVASTATIN [Suspect]
     Active Substance: ATORVASTATIN
     Indication: Hypercholesterolaemia
     Dosage: DOSAGE TEXT: UNK
     Route: 065
     Dates: start: 1999
  21. MIDAZOLAM HYDROCHLORIDE [Suspect]
     Active Substance: MIDAZOLAM HYDROCHLORIDE
     Indication: Anaesthesia
     Dosage: UNK
     Route: 042
     Dates: start: 200203, end: 200203
  22. MIDAZOLAM HYDROCHLORIDE [Suspect]
     Active Substance: MIDAZOLAM HYDROCHLORIDE
     Indication: Anaesthesia
     Dosage: UNK
     Route: 042
     Dates: start: 20020301, end: 20020301
  23. ASPIRIN [Suspect]
     Active Substance: ASPIRIN
     Indication: Angina pectoris
     Dosage: DOSAGE TEXT: UNK
     Route: 065
     Dates: start: 200203
  24. ATORVASTATIN [Suspect]
     Active Substance: ATORVASTATIN
     Indication: Hypercholesterolaemia
     Dosage: UNK
     Route: 048
     Dates: start: 19990101, end: 200203
  25. QUININE SULFATE [Suspect]
     Active Substance: QUININE SULFATE
     Indication: Muscle spasms
     Dosage: DOSAGE TEXT: UNK
     Route: 065
  26. FENTANYL [Suspect]
     Active Substance: FENTANYL\FENTANYL CITRATE
     Indication: Induction of anaesthesia
     Dosage: DOSAGE TEXT: UNK
     Route: 042
     Dates: start: 20020301, end: 20020301
  27. FENTANYL [Suspect]
     Active Substance: FENTANYL\FENTANYL CITRATE
     Indication: Induction of anaesthesia
     Dosage: UNK
     Route: 042
     Dates: start: 200203, end: 200203
  28. FLUTICASONE PROPIONATE [Concomitant]
     Active Substance: FLUTICASONE PROPIONATE
     Dosage: 1 MICROGRAM, BID
     Route: 045
  29. LANSOPRAZOLE [Suspect]
     Active Substance: LANSOPRAZOLE
     Indication: Duodenal ulcer
     Dosage: DOSE AS USED: UNK
     Route: 048
     Dates: start: 200203

REACTIONS (18)
  - Renal failure [Fatal]
  - Haematemesis [Fatal]
  - Duodenal ulcer [Fatal]
  - Labile blood pressure [Fatal]
  - Abdominal pain upper [Fatal]
  - Hepatic failure [Fatal]
  - Multiple organ dysfunction syndrome [Fatal]
  - Gastrointestinal haemorrhage [Fatal]
  - Labile blood pressure [Fatal]
  - Coagulopathy [Fatal]
  - Diverticulitis [Fatal]
  - Abdominal pain upper [Fatal]
  - Myocardial ischaemia [Fatal]
  - Acute hepatic failure [Fatal]
  - Intestinal ischaemia [Fatal]
  - Coronary artery disease [Fatal]
  - Abdominal rigidity [Fatal]
  - Haematemesis [Fatal]

NARRATIVE: CASE EVENT DATE: 20020415
